FAERS Safety Report 5317873-0 (Version None)
Quarter: 2007Q2

REPORT INFORMATION
  Report Type: 
  Country: None (occurrence: None)
  Receive Date: 20070507
  Receipt Date: 20070426
  Transmission Date: 20071010
  Serious: Yes (Hospitalization, Other)
  Sender: FDA-Public Use
  Company Number: FR-JNJFOC-20070302225

PATIENT
  Age: 53 Year
  Sex: Male

DRUGS (10)
  1. REMICADE [Suspect]
     Route: 042
  2. REMICADE [Suspect]
     Route: 042
  3. REMICADE [Suspect]
     Route: 042
  4. REMICADE [Suspect]
     Route: 042
  5. REMICADE [Suspect]
     Route: 042
  6. REMICADE [Suspect]
     Route: 042
  7. REMICADE [Suspect]
     Indication: ANKYLOSING SPONDYLITIS
     Route: 042
  8. CARTEX [Concomitant]
     Indication: ANKYLOSING SPONDYLITIS
  9. DIANTALVIC [Concomitant]
     Indication: ANKYLOSING SPONDYLITIS
     Dosage: 3-5 CAPS/DAY
  10. VASTEN [Concomitant]
     Indication: HYPERLIPIDAEMIA

REACTIONS (1)
  - TRANSITIONAL CELL CARCINOMA [None]
